FAERS Safety Report 4500654-5 (Version None)
Quarter: 2004Q4

REPORT INFORMATION
  Report Type: 
  Country: None (occurrence: None)
  Receive Date: 20041112
  Receipt Date: 20041112
  Transmission Date: 20050328
  Serious: Yes (Other)
  Sender: FDA-Public Use
  Company Number: None

PATIENT
  Age: 52 Year
  Sex: Male

DRUGS (4)
  1. NOVOLOG [Suspect]
     Indication: HYPERGLYCAEMIA
     Dosage: SLIDING SCALE (MEAL COVERAGE)
     Dates: start: 20040813, end: 20040814
  2. LANTUS [Concomitant]
  3. TYLENOL./CODIENE #3 [Concomitant]
  4. PEN-VEE K [Concomitant]

REACTIONS (5)
  - ACCIDENTAL OVERDOSE [None]
  - BLOOD GLUCOSE DECREASED [None]
  - BLOOD POTASSIUM DECREASED [None]
  - BLOOD PRESSURE ABNORMAL [None]
  - MEDICATION ERROR [None]
